FAERS Safety Report 25475494 (Version 1)
Quarter: 2025Q2

REPORT INFORMATION
  Report Type: Spontaneous
  Country: US (occurrence: US)
  Receive Date: 20250624
  Receipt Date: 20250624
  Transmission Date: 20250716
  Serious: No
  Sender: KRAMER LABORATORIES
  Company Number: US-KRAMERLABS-2024-US-050728

PATIENT
  Sex: Female

DRUGS (1)
  1. NIZORAL A-D [Suspect]
     Active Substance: KETOCONAZOLE
     Indication: Dandruff
     Route: 061

REACTIONS (5)
  - Drug ineffective [Not Recovered/Not Resolved]
  - Accidental exposure to product [Recovered/Resolved]
  - Eye irritation [Recovered/Resolved]
  - Hypoaesthesia oral [Recovered/Resolved]
  - Suspected counterfeit product [Unknown]
